FAERS Safety Report 15886060 (Version 2)
Quarter: 2019Q1

REPORT INFORMATION
  Report Type: Spontaneous
  Country: ES (occurrence: ES)
  Receive Date: 20190129
  Receipt Date: 20190221
  Transmission Date: 20190417
  Serious: Yes (Death, Hospitalization)
  Sender: FDA-Public Use
  Company Number: ES-B.I. PHARMACEUTICALS,INC./RIDGEFIELD-2019-BI-003069

PATIENT
  Age: 61 Year
  Sex: Female
  Weight: 50 kg

DRUGS (1)
  1. OFEV [Suspect]
     Active Substance: NINTEDANIB
     Indication: INTERSTITIAL LUNG DISEASE
     Dosage: UNIT DOSE: 150; DAILY DOSE: 300
     Route: 065
     Dates: start: 20160913, end: 20181229

REACTIONS (7)
  - Diarrhoea [Recovered/Resolved]
  - Pulmonary renal syndrome [Fatal]
  - Antineutrophil cytoplasmic antibody positive [Fatal]
  - Weight decreased [Recovered/Resolved]
  - Pulmonary alveolar haemorrhage [Fatal]
  - Vasculitis [Fatal]
  - Multiple organ dysfunction syndrome [Fatal]

NARRATIVE: CASE EVENT DATE: 20181229
